FAERS Safety Report 6517877-6 (Version None)
Quarter: 2009Q4

REPORT INFORMATION
  Report Type: 
  Country: None (occurrence: None)
  Receive Date: 20091224
  Receipt Date: 20091219
  Transmission Date: 20100525
  Serious: Yes (Hospitalization)
  Sender: FDA-Public Use
  Company Number: BE-B.I. PHARMACEUTICALS,INC./RIDGEFIELD-2009-BL-00240BL

PATIENT
  Age: 59 Year
  Sex: Male

DRUGS (2)
  1. PERSANTINE [Suspect]
     Indication: CARDIOVASCULAR EVENT PROPHYLAXIS
     Dosage: 75 MG
     Dates: start: 20090601, end: 20091221
  2. RIVOTRIL [Concomitant]
     Indication: RHABDOMYOLYSIS

REACTIONS (4)
  - DRY MOUTH [None]
  - NASAL DRYNESS [None]
  - PRURITUS [None]
  - TENDONITIS [None]
